FAERS Safety Report 6847609-3 (Version None)
Quarter: 2010Q3

REPORT INFORMATION
  Report Type: 
  Country: None (occurrence: None)
  Receive Date: 20100714
  Receipt Date: 20100624
  Transmission Date: 20110219
  Serious: Yes (Hospitalization, Other)
  Sender: FDA-Public Use
  Company Number: 10024RX

PATIENT
  Age: 80 Year
  Sex: Female

DRUGS (4)
  1. POTASSIUM CITRATE [Suspect]
     Indication: NEPHROLITHIASIS
     Dosage: 6 PER DAY, ORAL
     Route: 048
     Dates: start: 20070101
  2. PLAVIX [Concomitant]
  3. LIPITOR [Concomitant]
  4. ASPIRIN [Concomitant]

REACTIONS (10)
  - ABDOMINAL PAIN UPPER [None]
  - CONSTIPATION [None]
  - CYSTITIS [None]
  - DIZZINESS [None]
  - FAECALOMA [None]
  - HAEMORRHOIDS [None]
  - NEPHROLITHIASIS [None]
  - RENAL IMPAIRMENT [None]
  - SYNCOPE [None]
  - UNEVALUABLE EVENT [None]
